FAERS Safety Report 7301196-4 (Version None)
Quarter: 2010Q4

REPORT INFORMATION
  Report Type: 
  Country: None (occurrence: None)
  Receive Date: 20101229
  Receipt Date: 20100910
  Transmission Date: 20110411
  Serious: No
  Sender: FDA-Public Use
  Company Number: 1000016193

PATIENT
  Age: 40 Year
  Sex: Female

DRUGS (9)
  1. BYSTOLIC [Suspect]
     Indication: HYPERTENSION
     Dosage: 5 MG (5 MG, 1 IN 1 D), ORAL, 10 MG 910 MG, 1 IN 1 D), ORAL
     Route: 048
     Dates: start: 20100827, end: 20100902
  2. BYSTOLIC [Suspect]
     Indication: HYPERTENSION
     Dosage: 5 MG (5 MG, 1 IN 1 D), ORAL, 10 MG 910 MG, 1 IN 1 D), ORAL
     Route: 048
     Dates: start: 20100903
  3. CYMBALTA (DULOXETINE HYDROCHLORIDE) (DULOXETINE HYDROCHLORIDE) [Concomitant]
  4. ZYRTEC [Concomitant]
  5. FENTANYL [Concomitant]
  6. METANX (METANX) (METANX) [Concomitant]
  7. COLACE (DOCUSATE SODIUM) (DOCUSATE SODIUM) [Concomitant]
  8. DARVOCET (PROPOXYPHENE NAPSYLATE, ACETAMINOPHEN) (PROPOXYPHENE NAPSYLA [Concomitant]
  9. KLONOPIN (CLONAZEPAM) (CLONAZEPAM) [Concomitant]

REACTIONS (1)
  - DYSKINESIA [None]
